FAERS Safety Report 6247117-7 (Version None)
Quarter: 2009Q2

REPORT INFORMATION
  Report Type: 
  Country: None (occurrence: None)
  Receive Date: 20090626
  Receipt Date: 20090615
  Transmission Date: 20091009
  Serious: Yes (Other)
  Sender: FDA-Public Use
  Company Number: PHHY2009DE19895

PATIENT
  Sex: Male
  Weight: 70 kg

DRUGS (1)
  1. GLEEVEC [Suspect]
     Indication: HYPEREOSINOPHILIC SYNDROME
     Dosage: 400 MG/DAY
     Route: 048
     Dates: start: 20060202, end: 20090301

REACTIONS (2)
  - PLATELET FUNCTION TEST ABNORMAL [None]
  - SUBDURAL HAEMATOMA [None]
